FAERS Safety Report 17162789 (Version 1)
Quarter: 2019Q4

REPORT INFORMATION
  Report Type: Spontaneous
  Country: US (occurrence: US)
  Receive Date: 20191216
  Receipt Date: 20191216
  Transmission Date: 20200122
  Serious: Yes (Disabling)
  Sender: FDA-Public Use
  Company Number: None

PATIENT
  Age: 3 Day
  Sex: Male
  Weight: 93.6 kg

DRUGS (1)
  1. VICKS DAYQUIL [Suspect]
     Active Substance: DEXTROMETHORPHAN HYDROBROMIDE\GUAIFENESIN
     Indication: NASOPHARYNGITIS
     Dosage: ?          QUANTITY:30 ML;?
     Route: 048
     Dates: start: 20191213, end: 20191213

REACTIONS (2)
  - Tremor [None]
  - Tachycardia [None]

NARRATIVE: CASE EVENT DATE: 20191213
